FAERS Safety Report 6127090-2 (Version None)
Quarter: 2009Q1

REPORT INFORMATION
  Report Type: 
  Country: None (occurrence: None)
  Receive Date: 20090320
  Receipt Date: 20090316
  Transmission Date: 20090719
  Serious: No
  Sender: FDA-Public Use
  Company Number: US-B.I. PHARMACEUTICALS,INC./RIDGEFIELD-2009-BP-03227BP

PATIENT
  Sex: Female

DRUGS (3)
  1. FLOMAX [Suspect]
     Indication: MULTIPLE SCLEROSIS
     Dosage: .4MG
     Route: 048
     Dates: start: 20090314
  2. FLOMAX [Suspect]
     Indication: BLADDER DISORDER
  3. COPAXONE [Concomitant]
     Indication: MULTIPLE SCLEROSIS

REACTIONS (4)
  - ANXIETY [None]
  - HEART RATE INCREASED [None]
  - INSOMNIA [None]
  - PALPITATIONS [None]
